FAERS Safety Report 5921556-3 (Version None)
Quarter: 2008Q4

REPORT INFORMATION
  Report Type: 
  Country: None (occurrence: None)
  Receive Date: 20081017
  Receipt Date: 20081006
  Transmission Date: 20090506
  Serious: Yes (Hospitalization)
  Sender: FDA-Public Use
  Company Number: US-JNJFOC-20080304891

PATIENT
  Sex: Female
  Weight: 116.58 kg

DRUGS (15)
  1. REMICADE [Suspect]
     Route: 042
  2. REMICADE [Suspect]
     Route: 042
  3. REMICADE [Suspect]
     Route: 042
  4. REMICADE [Suspect]
     Route: 042
  5. REMICADE [Suspect]
     Indication: CROHN'S DISEASE
     Route: 042
  6. HUMIRA [Concomitant]
  7. HUMIRA [Concomitant]
  8. PENTESA [Concomitant]
     Route: 048
  9. PREVACID [Concomitant]
  10. PREDNISONE TAB [Concomitant]
  11. SOLU-MEDROL [Concomitant]
  12. MULTIVITAMIN WITH IRON [Concomitant]
  13. FLUCONAZOLE [Concomitant]
  14. ONDANSETRON [Concomitant]
  15. HYDROCORTISONE 10MG TAB [Concomitant]

REACTIONS (3)
  - CATHETER SEPSIS [None]
  - CROHN'S DISEASE [None]
  - DIARRHOEA [None]
